FAERS Safety Report 9365869 (Version 3)
Quarter: 2014Q1

REPORT INFORMATION
  Report Type: Report from Study
  Country: DE (occurrence: DE)
  Receive Date: 20130625
  Receipt Date: 20140321
  Transmission Date: 20141002
  Serious: Yes (Other)
  Sender: FDA-Public Use
  Company Number: DE-ROCHE-1240362

PATIENT
  Age: 73 Year
  Sex: Male
  Weight: 69.92 kg

DRUGS (8)
  1. RANIBIZUMAB [Suspect]
     Indication: AGE-RELATED MACULAR DEGENERATION
     Route: 050
     Dates: start: 20110119
  2. RANIBIZUMAB [Suspect]
     Route: 050
     Dates: start: 201105
  3. RANIBIZUMAB [Suspect]
     Route: 050
     Dates: start: 20120523
  4. RANIBIZUMAB [Suspect]
     Route: 050
     Dates: start: 20120628
  5. RANIBIZUMAB [Suspect]
     Route: 050
     Dates: start: 20120823
  6. RANIBIZUMAB [Suspect]
     Route: 050
     Dates: start: 20121218
  7. DORZOLAMIDE [Concomitant]
     Indication: INTRAOCULAR PRESSURE INCREASED
  8. LATANOPROST EYE DROPS [Concomitant]
     Route: 061
     Dates: start: 20120521, end: 201208

REACTIONS (4)
  - Intraocular pressure increased [Recovered/Resolved]
  - Musculoskeletal discomfort [Recovered/Resolved]
  - Arthralgia [Recovered/Resolved]
  - Visual acuity reduced [Unknown]
